FAERS Safety Report 7704662-2 (Version None)
Quarter: 2011Q3

REPORT INFORMATION
  Report Type: 
  Country: None (occurrence: None)
  Receive Date: 20110823
  Receipt Date: 20110819
  Transmission Date: 20111222
  Serious: Yes (Other)
  Sender: FDA-Public Use
  Company Number: US-SP-2011-05848

PATIENT
  Sex: Female

DRUGS (1)
  1. TUBERSOL [Suspect]
     Indication: TUBERCULIN TEST
     Route: 023
     Dates: start: 20110712, end: 20110712

REACTIONS (3)
  - LYMPHADENOPATHY [None]
  - PAIN IN EXTREMITY [None]
  - EXTENSIVE SWELLING OF VACCINATED LIMB [None]
